FAERS Safety Report 18392974 (Version 1)
Quarter: 2020Q4

REPORT INFORMATION
  Report Type: Report from Study
  Country: US (occurrence: US)
  Receive Date: 20201016
  Receipt Date: 20201016
  Transmission Date: 20210114
  Serious: Yes (Death, Hospitalization)
  Sender: FDA-Public Use
  Company Number: US-PFIZER INC-2020393411

PATIENT
  Age: 68 Year
  Sex: Female
  Weight: 61.8 kg

DRUGS (1)
  1. BINIMETINIB [Suspect]
     Active Substance: BINIMETINIB
     Indication: TRIPLE NEGATIVE BREAST CANCER
     Dosage: 45 MG, BID
     Dates: start: 20180201, end: 20180228

REACTIONS (1)
  - Flank pain [Recovered/Resolved]

NARRATIVE: CASE EVENT DATE: 20180212
